FAERS Safety Report 16178887 (Version 1)
Quarter: 2019Q2

REPORT INFORMATION
  Report Type: Spontaneous
  Country: ES (occurrence: ES)
  Receive Date: 20190410
  Receipt Date: 20190410
  Transmission Date: 20190711
  Serious: Yes (Other)
  Sender: FDA-Public Use
  Company Number: ES-ROCHE-2298236

PATIENT
  Age: 32 Year
  Sex: Female

DRUGS (1)
  1. XOLAIR [Suspect]
     Active Substance: OMALIZUMAB
     Indication: CHRONIC SPONTANEOUS URTICARIA
     Route: 065
     Dates: start: 20190327, end: 20190327

REACTIONS (8)
  - Hypersensitivity [Recovered/Resolved]
  - Pyrexia [Unknown]
  - Swollen tongue [Unknown]
  - Mouth swelling [Unknown]
  - Arthralgia [Unknown]
  - Oropharyngeal swelling [Unknown]
  - Urticarial vasculitis [Unknown]
  - Urticaria chronic [Unknown]

NARRATIVE: CASE EVENT DATE: 20190327
